FAERS Safety Report 23828562 (Version 1)
Quarter: 2024Q2

REPORT INFORMATION
  Report Type: Report from Study
  Country: US (occurrence: US)
  Receive Date: 20240508
  Receipt Date: 20240508
  Transmission Date: 20240715
  Serious: Yes (Other)
  Sender: FDA-Public Use
  Company Number: US-Merck Healthcare KGaA-2024023985

PATIENT
  Age: 52 Year
  Sex: Male

DRUGS (1)
  1. MAVENCLAD [Suspect]
     Active Substance: CLADRIBINE
     Indication: Multiple sclerosis
     Dosage: YEAR ONE MONTH ONE THERAPY
     Route: 048
     Dates: start: 20240422

REACTIONS (10)
  - Dizziness postural [Recovered/Resolved]
  - Loss of consciousness [Recovered/Resolved]
  - Insomnia [Recovering/Resolving]
  - Influenza like illness [Recovering/Resolving]
  - Restlessness [Recovering/Resolving]
  - Discomfort [Recovering/Resolving]
  - Disturbance in attention [Recovered/Resolved]
  - Disorientation [Recovered/Resolved]
  - Nervousness [Recovered/Resolved]
  - Cold sweat [Recovered/Resolved]

NARRATIVE: CASE EVENT DATE: 20240425
